FAERS Safety Report 7325285-3 (Version None)
Quarter: 2011Q1

REPORT INFORMATION
  Report Type: 
  Country: None (occurrence: None)
  Receive Date: 20110302
  Receipt Date: 20110218
  Transmission Date: 20110831
  Serious: Yes (Other)
  Sender: FDA-Public Use
  Company Number: IT-US-EMD SERONO, INC.-7042963

PATIENT
  Age: 31 Year
  Sex: Female

DRUGS (2)
  1. RECOMBINANT FOLLICLE STIMULATING HORMONE (RFSH) [Suspect]
     Indication: OVARIAN HYPERSTIMULATION SYNDROME
  2. GNRH ANTAGONIST REGIMEN [Concomitant]
     Indication: OVARIAN HYPERSTIMULATION SYNDROME

REACTIONS (5)
  - ECTOPIC PREGNANCY [None]
  - UTERINE HAEMORRHAGE [None]
  - UTERINE CONTRACTIONS DURING PREGNANCY [None]
  - VAGINAL HAEMORRHAGE [None]
  - PELVIC PAIN [None]
